FAERS Safety Report 5068433-0 (Version None)
Quarter: 2006Q3

REPORT INFORMATION
  Report Type: 
  Country: None (occurrence: None)
  Receive Date: 20060802
  Receipt Date: 20050926
  Transmission Date: 20061208
  Serious: No
  Sender: FDA-Public Use
  Company Number: US-BRISTOL-MYERS SQUIBB COMPANY-13121777

PATIENT
  Age: 77 Year
  Sex: Male
  Weight: 90 kg

DRUGS (3)
  1. COUMADIN [Suspect]
     Indication: TRANSIENT ISCHAEMIC ATTACK
     Dosage: DOSE WAS INCR. ON 9/23/05 + 9/24/05 TO 10MG, ON 9/25/05 DOSE WAS 7.5MG, AND ON 9/26/05 DOSE WAS 7MG
     Dates: start: 19990901
  2. ADVAIR DISKUS 100/50 [Concomitant]
  3. LIPITOR [Concomitant]

REACTIONS (1)
  - INTERNATIONAL NORMALISED RATIO INCREASED [None]
